FAERS Safety Report 5398687-2 (Version None)
Quarter: 2007Q3

REPORT INFORMATION
  Report Type: 
  Country: None (occurrence: None)
  Receive Date: 20070726
  Receipt Date: 20060825
  Transmission Date: 20080115
  Serious: Yes (Hospitalization)
  Sender: FDA-Public Use
  Company Number: US-AMGEN-US191224

PATIENT
  Sex: Male
  Weight: 51 kg

DRUGS (9)
  1. EPOGEN [Suspect]
     Indication: DIALYSIS
     Route: 042
  2. TESTOSTERONE [Concomitant]
  3. DIPHENHYDRAMINE HCL [Concomitant]
  4. ATIVAN [Concomitant]
  5. RENAGEL [Concomitant]
  6. SYNTHROID [Concomitant]
  7. NORVASC [Concomitant]
  8. VITAMIN CAP [Concomitant]
  9. PHOSLO [Concomitant]

REACTIONS (3)
  - ANAEMIA [None]
  - ARTHRALGIA [None]
  - DECUBITUS ULCER [None]
